FAERS Safety Report 20539991 (Version 1)
Quarter: 2022Q1

REPORT INFORMATION
  Report Type: Spontaneous
  Country: TR (occurrence: TR)
  Receive Date: 20220302
  Receipt Date: 20220302
  Transmission Date: 20220423
  Serious: Yes (Life-Threatening)
  Sender: FDA-Public Use
  Company Number: TR-JNJFOC-20210945079

PATIENT
  Age: 41 Year
  Sex: Male
  Weight: 42 kg

DRUGS (2)
  1. FENTANYL [Suspect]
     Active Substance: FENTANYL
     Indication: Cancer pain
     Route: 062
  2. FENTANYL [Suspect]
     Active Substance: FENTANYL
     Route: 062

REACTIONS (5)
  - Blindness [Not Recovered/Not Resolved]
  - Speech disorder [Unknown]
  - Balance disorder [Unknown]
  - Headache [Unknown]
  - Motor dysfunction [Unknown]

NARRATIVE: CASE EVENT DATE: 20210914
